FAERS Safety Report 9991464 (Version 1)
Quarter: 2014Q1

REPORT INFORMATION
  Report Type: Spontaneous
  Country: US (occurrence: US)
  Receive Date: 20140310
  Receipt Date: 20140310
  Transmission Date: 20141002
  Serious: No
  Sender: FDA-Public Use
  Company Number: US-ABBVIE-13P-163-1131839-00

PATIENT
  Age: 17 Year
  Sex: Male
  Weight: 54.48 kg

DRUGS (3)
  1. HUMIRA [Suspect]
     Indication: JUVENILE IDIOPATHIC ARTHRITIS
     Dates: start: 201304
  2. ACCUTANE [Concomitant]
     Indication: ACNE
  3. ALBUTEROL [Concomitant]
     Indication: ASTHMA

REACTIONS (1)
  - Drug screen positive [Unknown]
